FAERS Safety Report 6692959-7 (Version None)
Quarter: 2010Q2

REPORT INFORMATION
  Report Type: 
  Country: None (occurrence: None)
  Receive Date: 20100420
  Receipt Date: 20100413
  Transmission Date: 20101027
  Serious: Yes (Other)
  Sender: FDA-Public Use
  Company Number: JHP201000045

PATIENT
  Age: 17 Year
  Sex: Female

DRUGS (1)
  1. PITOCIN [Suspect]
     Indication: POSTPARTUM HAEMORRHAGE
     Dosage: 40 IU IN A LITER OF IV SOLUTION OVER 15  MINUTES, INTRAVENOUS
     Route: 042

REACTIONS (1)
  - POSTPARTUM HAEMORRHAGE [None]
